FAERS Safety Report 20224468 (Version 2)
Quarter: 2022Q1

REPORT INFORMATION
  Report Type: Spontaneous
  Country: US (occurrence: US)
  Receive Date: 20211223
  Receipt Date: 20220131
  Transmission Date: 20220424
  Serious: No
  Sender: FDA-Public Use
  Company Number: US-PHARMING-PHAUS2021000670

PATIENT

DRUGS (1)
  1. RUCONEST [Suspect]
     Active Substance: HUMAN C1-ESTERASE INHIBITOR
     Indication: Hereditary angioedema
     Dosage: 3000 IU, ONCE WEEKLY AND PRN
     Route: 042
     Dates: start: 20190315

REACTIONS (2)
  - Weight decreased [Unknown]
  - Intentional product use issue [Not Recovered/Not Resolved]
